FAERS Safety Report 8485764-2 (Version None)
Quarter: 2012Q3

REPORT INFORMATION
  Report Type: 
  Country: None (occurrence: None)
  Receive Date: 20120703
  Receipt Date: 20120624
  Transmission Date: 20120928
  Serious: Yes (Other)
  Sender: FDA-Public Use
  Company Number: US-ABBOTT-12P-163-0948275-00

PATIENT
  Age: 45 Year
  Sex: Female

DRUGS (7)
  1. HUMIRA [Suspect]
     Indication: PSORIATIC ARTHROPATHY
     Dates: start: 20120201
  2. CITALOPRAM HYDROBROMIDE [Concomitant]
     Indication: ANXIETY
  3. ZOLPIDEM [Concomitant]
     Indication: RESTLESS LEGS SYNDROME
     Dosage: 10 MG AT BEDTIME
  4. OMEPRAZOLE [Concomitant]
     Indication: DYSPEPSIA
     Dosage: 40 MG DAILY
  5. SYNTHROID [Concomitant]
     Indication: THYROID FUNCTION TEST ABNORMAL
     Dosage: 175 MCG DAILY
  6. PRAVASTATIN [Concomitant]
     Indication: BLOOD CHOLESTEROL INCREASED
     Dosage: 40 MG AT BEDTIME
  7. CITALOPRAM HYDROBROMIDE [Concomitant]
     Indication: DEPRESSION
     Dosage: 20 DAILY

REACTIONS (5)
  - MUSCLE SPASMS [None]
  - OESOPHAGITIS [None]
  - SPINAL PAIN [None]
  - INTERVERTEBRAL DISC PROTRUSION [None]
  - SKIN EXFOLIATION [None]
